FAERS Safety Report 8776423 (Version 1)
Quarter: 2012Q4

REPORT INFORMATION
  Report Type: 
  Country: GB (occurrence: GB)
  Receive Date: 20120911
  Receipt Date: 20120911
  Transmission Date: 20130627
  Serious: Yes (Life-Threatening, Hospitalization)
  Sender: FDA-Public Use
  Company Number: GB-TEVA-356483ISR

PATIENT
  Age: 58 Year
  Sex: Female

DRUGS (3)
  1. AMOXICILLIN\CLAVULANATE POTASSIUM [Suspect]
     Route: 040
     Dates: end: 20120803
  2. OMEPRAZOLE [Concomitant]
  3. LISINOPRIL [Concomitant]

REACTIONS (10)
  - Cholecystitis acute [Recovering/Resolving]
  - Cholelithiasis [Unknown]
  - Pyrexia [Unknown]
  - Abdominal pain upper [Unknown]
  - Nausea [Unknown]
  - Vomiting [Unknown]
  - Gamma-glutamyltransferase increased [Unknown]
  - Alanine aminotransferase increased [Unknown]
  - Inflammatory marker increased [Unknown]
  - Liver function test abnormal [Unknown]
